FAERS Safety Report 20966503 (Version 1)
Quarter: 2022Q2

REPORT INFORMATION
  Report Type: Spontaneous
  Country: US (occurrence: None)
  Receive Date: 20220615
  Receipt Date: 20220615
  Transmission Date: 20220721
  Serious: Yes (Other)
  Sender: FDA-Public Use
  Company Number: None

PATIENT
  Age: 50 Year
  Sex: Female
  Weight: 73.35 kg

DRUGS (4)
  1. ACITRETIN [Suspect]
     Active Substance: ACITRETIN
     Indication: Psoriasis
     Dosage: FREQUENCY : DAILY;?
     Route: 048
     Dates: start: 20220506, end: 20220601
  2. KISQALI [Concomitant]
     Active Substance: RIBOCICLIB
     Dates: start: 20220412
  3. OTEZLA [Concomitant]
     Active Substance: APREMILAST
     Dates: start: 20220504
  4. NAPROXEN [Concomitant]
     Active Substance: NAPROXEN

REACTIONS (3)
  - Skin exfoliation [None]
  - Erythema [None]
  - Pain of skin [None]

NARRATIVE: CASE EVENT DATE: 20220601
